FAERS Safety Report 18864820 (Version 1)
Quarter: 2021Q1

REPORT INFORMATION
  Report Type: Spontaneous
  Country: GB (occurrence: GB)
  Receive Date: 20210209
  Receipt Date: 20210209
  Transmission Date: 20210420
  Serious: Yes (Other)
  Sender: FDA-Public Use
  Company Number: NVSC2021GB027837

PATIENT
  Age: 21 Year
  Sex: Female
  Weight: 60.2 kg

DRUGS (1)
  1. FINGOLIMOD. [Suspect]
     Active Substance: FINGOLIMOD
     Indication: RELAPSING MULTIPLE SCLEROSIS
     Dosage: 0.5 MG, UNKNOWN
     Route: 048

REACTIONS (4)
  - Vomiting [Unknown]
  - Nausea [Unknown]
  - Headache [Unknown]
  - Immunosuppression [Not Recovered/Not Resolved]
